FAERS Safety Report 8957325 (Version 6)
Quarter: 2014Q1

REPORT INFORMATION
  Report Type: Spontaneous
  Country: US (occurrence: US)
  Receive Date: 20121210
  Receipt Date: 20140310
  Transmission Date: 20141002
  Serious: No
  Sender: FDA-Public Use
  Company Number: US-ASTELLAS-2012US010869

PATIENT
  Age: 91 Year
  Sex: Male

DRUGS (1)
  1. XTANDI [Suspect]
     Indication: PROSTATE CANCER
     Dosage: 160 MG, UID/QD
     Route: 048
     Dates: start: 20121010

REACTIONS (12)
  - Lacrimation increased [Unknown]
  - Nausea [Unknown]
  - Nausea [Not Recovered/Not Resolved]
  - Dysgeusia [Not Recovered/Not Resolved]
  - Back pain [Unknown]
  - Paraesthesia [Unknown]
  - Amnesia [Unknown]
  - Abdominal discomfort [Unknown]
  - Hunger [Unknown]
  - Insomnia [Unknown]
  - Anxiety [Unknown]
  - Asthenia [Not Recovered/Not Resolved]
